FAERS Safety Report 24351466 (Version 1)
Quarter: 2024Q3

REPORT INFORMATION
  Report Type: Report from Study
  Country: AT (occurrence: AT)
  Receive Date: 20240923
  Receipt Date: 20240923
  Transmission Date: 20241017
  Serious: No
  Sender: ROCHE
  Company Number: AT-ROCHE-2825831

PATIENT
  Age: 65 Year
  Sex: Female
  Weight: 68.0 kg

DRUGS (17)
  1. HERCEPTIN [Suspect]
     Active Substance: TRASTUZUMAB
     Indication: HER2 positive breast cancer
     Dosage: ON 13/MAY/2019: MOST RECENT DOSE OF TRASTUZUMAB BEFORE EVENT ONSET
     Route: 042
     Dates: start: 20160823
  2. PERJETA [Suspect]
     Active Substance: PERTUZUMAB
     Indication: HER2 positive breast cancer
     Dosage: ON 13/MAY/2019: MOST RECENT DOSE OF PERTUZUMAB BEFORE EVENT ONSET
     Route: 042
     Dates: start: 20160823
  3. KADCYLA [Suspect]
     Active Substance: ADO-TRASTUZUMAB EMTANSINE
     Indication: HER2 positive breast cancer
     Dosage: ON 14/SEP/2020: MOST RECENT DOSE OF TRASTUZUMAB EMTANSINE BEFORE EVENT ONSET
     Route: 042
     Dates: start: 20190603
  4. TAXOTERE [Suspect]
     Active Substance: DOCETAXEL
     Indication: HER2 positive breast cancer
     Dosage: ON 12/SEP/2016: MOST RECENT DOSE OF DOCETAXEL BEFORE EVENT ONSET
     Route: 042
     Dates: start: 20160823
  5. NAVELBINE [Suspect]
     Active Substance: VINORELBINE TARTRATE
     Indication: HER2 positive breast cancer
     Dosage: ON 13/FEB/2017: MOST RECENT DOSE OF VINORELBINE BEFORE EVENT ONSET
     Route: 042
     Dates: start: 20160913
  6. DRONABINOL [Concomitant]
     Active Substance: DRONABINOL
     Dosage: ONGOING = CHECKED
  7. MIRTAZAPINE [Concomitant]
     Active Substance: MIRTAZAPINE
  8. PANTOPRAZOLE SODIUM [Concomitant]
     Active Substance: PANTOPRAZOLE SODIUM
     Dates: start: 20160809
  9. NOVALGIN (AUSTRIA) [Concomitant]
     Indication: Arthralgia
     Dosage: ONGOING = CHECKED
     Dates: start: 20200714
  10. HYDROMORPHONE HYDROCHLORIDE [Concomitant]
     Active Substance: HYDROMORPHONE HYDROCHLORIDE
     Indication: Arthralgia
     Dosage: ONGOING = NOT CHECKED?15/JUN/2021
     Dates: start: 20210815
  11. HYDROMORPHONE HYDROCHLORIDE [Concomitant]
     Active Substance: HYDROMORPHONE HYDROCHLORIDE
     Indication: Arthralgia
     Dosage: 15/JUN/2021?ONGOING = NOT CHECKED
     Dates: start: 20210815
  12. CEFOTAXIME [Concomitant]
     Active Substance: CEFOTAXIME SODIUM
     Indication: Arthralgia
     Dosage: ONGOING = NOT CHECKED?15/JUN/2021
     Dates: start: 20210816
  13. DEXAMETHASONE [Concomitant]
     Active Substance: DEXAMETHASONE
     Dates: start: 20160822
  14. ZOFRAN [Concomitant]
     Active Substance: ONDANSETRON HYDROCHLORIDE
     Dates: start: 20160823
  15. PREDNISOLONE SODIUM SUCCINATE [Concomitant]
     Active Substance: PREDNISOLONE SODIUM SUCCINATE
     Dates: start: 20161031
  16. DIPHENHYDRAMINE HYDROCHLORIDE [Concomitant]
     Active Substance: DIPHENHYDRAMINE HYDROCHLORIDE
     Dosage: ONGOING = CHECKED
     Dates: start: 20161031
  17. XGEVA [Concomitant]
     Active Substance: DENOSUMAB
     Indication: Metastases to bone
     Route: 058
     Dates: start: 20160816

REACTIONS (1)
  - Blood bilirubin increased [Recovered/Resolved]

NARRATIVE: CASE EVENT DATE: 20201006
